FAERS Safety Report 6155806-8 (Version None)
Quarter: 2009Q2

REPORT INFORMATION
  Report Type: 
  Country: None (occurrence: None)
  Receive Date: 20090415
  Receipt Date: 20090403
  Transmission Date: 20091009
  Serious: Yes (Life-Threatening, Other)
  Sender: FDA-Public Use
  Company Number: IN-PFIZER INC-2009186232

PATIENT

DRUGS (3)
  1. MAGNEX [Suspect]
     Indication: POSTOPERATIVE CARE
     Dosage: 2 G, 2X/DAY
     Dates: start: 20090312, end: 20090317
  2. AMIKACIN [Concomitant]
     Route: 042
     Dates: start: 20090312, end: 20090317
  3. METROGYL [Concomitant]
     Route: 042
     Dates: start: 20090312, end: 20090317

REACTIONS (4)
  - PLATELET COUNT DECREASED [None]
  - PYREXIA [None]
  - RETICULOCYTE COUNT DECREASED [None]
  - WHITE BLOOD CELL COUNT DECREASED [None]
